FAERS Safety Report 4475512-5 (Version None)
Quarter: 2004Q4

REPORT INFORMATION
  Report Type: 
  Country: None (occurrence: None)
  Receive Date: 20041015
  Receipt Date: 20041003
  Transmission Date: 20050328
  Serious: Yes (Hospitalization, Disabling)
  Sender: FDA-Public Use
  Company Number: CA-MERCK-0410CAN00233

PATIENT
  Age: 52 Year
  Sex: Male

DRUGS (1)
  1. VIOXX [Suspect]
     Route: 048

REACTIONS (3)
  - ANGINA PECTORIS [None]
  - CARDIAC DISORDER [None]
  - FEELING ABNORMAL [None]
